FAERS Safety Report 10360676 (Version 1)
Quarter: 2014Q3

REPORT INFORMATION
  Report Type: Report from Study
  Country: GB (occurrence: MW)
  Receive Date: 20140804
  Receipt Date: 20140804
  Transmission Date: 20150326
  Serious: Yes (Hospitalization)
  Sender: FDA-Public Use
  Company Number: GB-BRISTOL-MYERS SQUIBB COMPANY-21253224

PATIENT
  Age: 37 Year
  Sex: Male

DRUGS (5)
  1. RALTEGRAVIR [Suspect]
     Active Substance: RALTEGRAVIR
     Indication: HIV INFECTION
     Dates: start: 20140710
  2. EFAVIRENZ [Suspect]
     Active Substance: EFAVIRENZ
     Indication: HIV INFECTION
     Dates: start: 20140710
  3. EMTRICITABINE [Suspect]
     Active Substance: EMTRICITABINE
     Dates: start: 20140710
  4. COTRIMOXAZOLE [Suspect]
     Active Substance: SULFAMETHOXAZOLE\TRIMETHOPRIM
     Dates: start: 20140623
  5. TENOFOVIR [Suspect]
     Active Substance: TENOFOVIR
     Dates: start: 20140710

REACTIONS (2)
  - Anaemia [Not Recovered/Not Resolved]
  - Sepsis [Not Recovered/Not Resolved]

NARRATIVE: CASE EVENT DATE: 20140713
